FAERS Safety Report 21610863 (Version 2)
Quarter: 2022Q4

REPORT INFORMATION
  Report Type: Spontaneous
  Country: US (occurrence: US)
  Receive Date: 20221117
  Receipt Date: 20221212
  Transmission Date: 20230113
  Serious: Yes (Death, Life-Threatening, Hospitalization)
  Sender: FDA-Public Use
  Company Number: US-TEVA-2022-US-2825334

PATIENT
  Age: 32 Year
  Sex: Female

DRUGS (8)
  1. NALOXONE [Suspect]
     Active Substance: NALOXONE
     Indication: Intentional overdose
     Route: 065
  2. NOREPINEPHRINE [Suspect]
     Active Substance: NOREPINEPHRINE
     Indication: Diabetic ketoacidosis
     Route: 050
  3. CLOBAZAM [Suspect]
     Active Substance: CLOBAZAM
     Indication: Partial seizures
     Route: 048
  4. SODIUM BICARBONATE [Suspect]
     Active Substance: SODIUM BICARBONATE
     Indication: Diabetic ketoacidosis
     Dosage: BICARBONATE DRIPS
     Route: 065
  5. INSULIN NOS [Suspect]
     Active Substance: INSULIN NOS
     Indication: Diabetic ketoacidosis
     Route: 050
  6. VASOPRESSIN [Suspect]
     Active Substance: VASOPRESSIN
     Indication: Diabetic ketoacidosis
     Route: 065
  7. EPINEPHRINE [Concomitant]
     Active Substance: EPINEPHRINE
     Indication: Diabetic ketoacidosis
     Route: 050
  8. CALCIUM [Concomitant]
     Active Substance: CALCIUM
     Indication: Diabetic ketoacidosis
     Route: 050

REACTIONS (9)
  - Diabetic ketoacidosis [Fatal]
  - Pulmonary embolism [Fatal]
  - Hyponatraemia [Fatal]
  - Pneumonia necrotising [Fatal]
  - Intentional overdose [Unknown]
  - Cardiac arrest [Unknown]
  - Toxicity to various agents [Unknown]
  - Drug ineffective [Unknown]
  - Intentional product misuse [Unknown]
